FAERS Safety Report 10075472 (Version 1)
Quarter: 2014Q2

REPORT INFORMATION
  Report Type: Spontaneous
  Country: GB (occurrence: GB)
  Receive Date: 20140414
  Receipt Date: 20140414
  Transmission Date: 20141212
  Serious: Yes (Disabling)
  Sender: FDA-Public Use
  Company Number: GB-009507513-1404GBR006886

PATIENT
  Age: 34 Year
  Sex: Male
  Weight: 60 kg

DRUGS (2)
  1. MAXALT 10 MG TABLETS [Suspect]
     Dosage: 10 MG
     Route: 048
     Dates: start: 20140307, end: 20140312
  2. AMITRIPTYLINE HYDROCHLORIDE [Concomitant]
     Indication: MIGRAINE
     Dosage: 50 MG
     Route: 048
     Dates: start: 20140122

REACTIONS (2)
  - Paralysis [Recovered/Resolved]
  - Aphasia [Recovered/Resolved]
